FAERS Safety Report 13552116 (Version 1)
Quarter: 2017Q2

REPORT INFORMATION
  Report Type: Spontaneous
  Country: US (occurrence: US)
  Receive Date: 20170516
  Receipt Date: 20170516
  Transmission Date: 20170830
  Serious: No
  Sender: FDA-Public Use
  Company Number: US-BIOGEN-2017BI00399588

PATIENT
  Age: 73 Year
  Sex: Male

DRUGS (2)
  1. TYSABRI [Suspect]
     Active Substance: NATALIZUMAB
     Indication: MULTIPLE SCLEROSIS
     Dosage: INFUSED OVER 1 HR
     Route: 042
     Dates: start: 20101112, end: 20170316
  2. RITUXAN [Concomitant]
     Active Substance: RITUXIMAB
     Indication: WHITE BLOOD CELL COUNT INCREASED
     Route: 065
     Dates: start: 20170419

REACTIONS (1)
  - Movement disorder [Not Recovered/Not Resolved]

NARRATIVE: CASE EVENT DATE: 20170410
